FAERS Safety Report 4672631-5 (Version None)
Quarter: 2005Q2

REPORT INFORMATION
  Report Type: 
  Country: None (occurrence: None)
  Receive Date: 20050524
  Receipt Date: 20050214
  Transmission Date: 20051028
  Serious: Yes (Hospitalization)
  Sender: FDA-Public Use
  Company Number: PHNU2005DE00960

PATIENT
  Age: 65 Year
  Sex: Male
  Weight: 93 kg

DRUGS (6)
  1. LAMISIL [Suspect]
     Indication: ONYCHOMYCOSIS
     Dosage: 250 MG, QD
     Route: 048
     Dates: start: 20041110, end: 20041130
  2. ROSIGLITAZONE [Concomitant]
     Indication: DIABETES MELLITUS
  3. PLAVIX [Concomitant]
     Indication: PLATELET AGGREGATION INHIBITION
     Dosage: 75 MG, QD
  4. PROSCAR [Concomitant]
     Indication: BENIGN PROSTATIC HYPERPLASIA
     Dosage: 1 DF, QD
  5. NEURONTIN [Concomitant]
     Indication: DIABETIC NEUROPATHY
     Dosage: 300 MG, BID
  6. NOVALGIN /SCH/ [Concomitant]
     Indication: PAIN
     Dosage: 20 DRP, PRN

REACTIONS (14)
  - ASPARTATE AMINOTRANSFERASE INCREASED [None]
  - BLOOD ALKALINE PHOSPHATASE INCREASED [None]
  - BODY TEMPERATURE INCREASED [None]
  - C-REACTIVE PROTEIN INCREASED [None]
  - CHILLS [None]
  - CHOLECYSTITIS [None]
  - DYSPHONIA [None]
  - GAMMA-GLUTAMYLTRANSFERASE INCREASED [None]
  - HEADACHE [None]
  - HEPATOCELLULAR DAMAGE [None]
  - MALAISE [None]
  - RED BLOOD CELL SEDIMENTATION RATE INCREASED [None]
  - SPLENOMEGALY [None]
  - TESTICULAR SWELLING [None]
